FAERS Safety Report 8401078-0 (Version None)
Quarter: 2012Q2

REPORT INFORMATION
  Report Type: 
  Country: None (occurrence: None)
  Receive Date: 20120529
  Receipt Date: 20120529
  Transmission Date: 20120825
  Serious: Yes (Hospitalization)
  Sender: FDA-Public Use
  Company Number: None

PATIENT
  Age: 32 Year
  Sex: Female

DRUGS (1)
  1. OMNISCAN [Suspect]
     Indication: SCAN WITH CONTRAST
     Dosage: 14 ML ONCE IV BOLUS
     Route: 042
     Dates: start: 20120515, end: 20120515

REACTIONS (1)
  - URTICARIA [None]
